FAERS Safety Report 7851735-X (Version None)
Quarter: 2011Q4

REPORT INFORMATION
  Report Type: 
  Country: None (occurrence: None)
  Receive Date: 20111026
  Receipt Date: 20110914
  Transmission Date: 20120403
  Serious: No
  Sender: FDA-Public Use
  Company Number: US-BAYER-2011-090679

PATIENT
  Age: 69 Year
  Sex: Female
  Weight: 86 kg

DRUGS (8)
  1. BENAZEPRIL HYDROCHLORIDE [Concomitant]
  2. PRAVASTATIN [Concomitant]
  3. THIOTHIXENE [Concomitant]
  4. ATIVAN [Concomitant]
  5. ALEVE (CAPLET) [Suspect]
     Indication: ARTHRITIS
     Dosage: 3 DF, QD
     Route: 048
     Dates: start: 20110714
  6. PLAVIX [Concomitant]
  7. MELOXICAM [Concomitant]
  8. PANTOPRAZOLE [Concomitant]

REACTIONS (1)
  - NO ADVERSE EVENT [None]
